FAERS Safety Report 8462523-8 (Version None)
Quarter: 2012Q2

REPORT INFORMATION
  Report Type: 
  Country: None (occurrence: None)
  Receive Date: 20120625
  Receipt Date: 20120618
  Transmission Date: 20120825
  Serious: Yes (Hospitalization)
  Sender: FDA-Public Use
  Company Number: US-BAYER-2012-062054

PATIENT
  Age: 19 Year
  Sex: Female
  Weight: 112.47 kg

DRUGS (2)
  1. YASMIN [Suspect]
  2. PERCOCET [Concomitant]
     Indication: PAIN
     Dosage: UNK UNK, Q4HR

REACTIONS (1)
  - PULMONARY EMBOLISM [None]
